FAERS Safety Report 7762540-7 (Version None)
Quarter: 2011Q3

REPORT INFORMATION
  Report Type: 
  Country: None (occurrence: None)
  Receive Date: 20110920
  Receipt Date: 20110913
  Transmission Date: 20111222
  Serious: Yes (Other)
  Sender: FDA-Public Use
  Company Number: CA-B.I. PHARMACEUTICALS,INC./RIDGEFIELD-2011-CN-01339CN

PATIENT

DRUGS (1)
  1. PRADAXA [Suspect]

REACTIONS (1)
  - CEREBROVASCULAR ACCIDENT [None]
